FAERS Safety Report 14229924 (Version 2)
Quarter: 2017Q4

REPORT INFORMATION
  Report Type: Report from Study
  Country: NL (occurrence: NL)
  Receive Date: 20171128
  Receipt Date: 20171212
  Transmission Date: 20180321
  Serious: Yes (Other)
  Sender: FDA-Public Use
  Company Number: NL-AMGEN-NLDSL2017177028

PATIENT
  Sex: Female

DRUGS (2)
  1. XGEVA [Suspect]
     Active Substance: DENOSUMAB
     Dosage: 120 MG (1.7ML), Q4WK
     Route: 058
  2. XGEVA [Suspect]
     Active Substance: DENOSUMAB
     Indication: PROPHYLAXIS
     Dosage: 120 MG(1.7ML), Q4WK
     Route: 058

REACTIONS (1)
  - Terminal state [Unknown]
